FAERS Safety Report 5269897-X (Version None)
Quarter: 2007Q1

REPORT INFORMATION
  Report Type: 
  Country: None (occurrence: None)
  Receive Date: 20070320
  Receipt Date: 20070316
  Transmission Date: 20070707
  Serious: Yes (Hospitalization)
  Sender: FDA-Public Use
  Company Number: TW-GLAXOSMITHKLINE-B0462444A

PATIENT
  Age: 51 Year
  Sex: Female
  Weight: 54.5 kg

DRUGS (7)
  1. LAMOTRIGINE [Suspect]
     Indication: EPILEPSY
     Route: 048
     Dates: start: 20070202, end: 20070307
  2. CARBAMAZEPINE [Concomitant]
     Dosage: 800MG PER DAY
     Route: 048
     Dates: start: 20030509
  3. VALPROATE SODIUM [Concomitant]
     Route: 048
     Dates: start: 20030509
  4. LEVETIRACETAM [Concomitant]
     Dosage: 2000MG PER DAY
     Route: 048
     Dates: start: 20060616
  5. CINNARIZINE [Concomitant]
     Dosage: 25MG PER DAY
     Route: 048
     Dates: start: 20040408
  6. CARVEDILOL [Concomitant]
     Dosage: 50MG PER DAY
     Route: 048
     Dates: start: 20030314
  7. NIFEDIPINE [Concomitant]
     Dosage: 30MG PER DAY
     Route: 048
     Dates: start: 20030314

REACTIONS (9)
  - ABASIA [None]
  - BACK PAIN [None]
  - CEREBELLAR SYNDROME [None]
  - CONTUSION [None]
  - DIZZINESS [None]
  - DRUG TOXICITY [None]
  - FALL [None]
  - GAIT DISTURBANCE [None]
  - NYSTAGMUS [None]
